FAERS Safety Report 10234337 (Version 2)
Quarter: 2014Q2

REPORT INFORMATION
  Report Type: Report from Study
  Country: AU (occurrence: AU)
  Receive Date: 20140612
  Receipt Date: 20140626
  Transmission Date: 20141212
  Serious: Yes (Hospitalization)
  Sender: FDA-Public Use
  Company Number: AU-BIOMARINAP-AU-2014-103411

PATIENT
  Age: 6 Year
  Sex: Female
  Weight: 14.9 kg

DRUGS (3)
  1. BMN 110 [Suspect]
     Indication: MUCOPOLYSACCHARIDOSIS IV
     Dosage: 29.8 MG, QW
     Route: 041
     Dates: start: 20131127
  2. PREDNISOLONE [Concomitant]
     Indication: PREMEDICATION
     Dosage: 30 MG, UNK
     Dates: start: 20140603
  3. METHYLPREDNISOLONE [Concomitant]
     Indication: PREMEDICATION
     Dosage: 15 MG, UNK
     Dates: start: 20140604

REACTIONS (1)
  - Eye infection [Not Recovered/Not Resolved]
